FAERS Safety Report 14179050 (Version 3)
Quarter: 2018Q4

REPORT INFORMATION
  Report Type: Spontaneous
  Country: US (occurrence: US)
  Receive Date: 20171111
  Receipt Date: 20181024
  Transmission Date: 20190204
  Serious: Yes (Other)
  Sender: FDA-Public Use
  Company Number: US-CIPLA (EU) LIMITED-2017US19630

PATIENT

DRUGS (4)
  1. CARBOPLATIN. [Suspect]
     Active Substance: CARBOPLATIN
     Dosage: UNK, 5 CYCLES
     Route: 065
     Dates: start: 201308
  2. PACLITAXEL. [Suspect]
     Active Substance: PACLITAXEL
     Indication: LUNG CANCER METASTATIC
     Dosage: 80 MG/M2, ON DAYS 1, 8 AND 15, OVER THE COURSE OF 4 WEEKS
     Route: 065
  3. PACLITAXEL. [Suspect]
     Active Substance: PACLITAXEL
     Dosage: UNK (SINGLE AGENT)
     Route: 065
  4. CARBOPLATIN. [Suspect]
     Active Substance: CARBOPLATIN
     Indication: LUNG CANCER METASTATIC
     Dosage: UNK, AREA UNDER CURVE OF 6; ON DAYS 1, 8 AND 15 OVER THE COURSE OF 4 WEEKS
     Route: 065

REACTIONS (1)
  - Peripheral sensory neuropathy [Unknown]
